FAERS Safety Report 12421178 (Version 1)
Quarter: 2016Q2

REPORT INFORMATION
  Report Type: Spontaneous
  Country: GB (occurrence: GB)
  Receive Date: 20160531
  Receipt Date: 20160531
  Transmission Date: 20160815
  Serious: Yes (Hospitalization)
  Sender: FDA-Public Use
  Company Number: GB-PFIZER INC-2016273668

PATIENT
  Age: 20 Year
  Sex: Female

DRUGS (3)
  1. KEPPRA [Concomitant]
     Active Substance: LEVETIRACETAM
     Dosage: 750 MG, 2X/DAY
  2. LYRICA [Suspect]
     Active Substance: PREGABALIN
     Indication: EPILEPSY
     Dosage: 25 MG, UNK
     Dates: start: 201604
  3. LYRICA [Suspect]
     Active Substance: PREGABALIN
     Dosage: 50 MG, 2X/DAY

REACTIONS (7)
  - Extrapyramidal disorder [Recovering/Resolving]
  - Seizure [Not Recovered/Not Resolved]
  - Muscle spasms [Recovering/Resolving]
  - Dystonia [Recovering/Resolving]
  - Dyspnoea [Recovering/Resolving]
  - Prescribed underdose [Unknown]
  - Opisthotonus [Recovering/Resolving]

NARRATIVE: CASE EVENT DATE: 201604
